FAERS Safety Report 6551672-7 (Version None)
Quarter: 2010Q1

REPORT INFORMATION
  Report Type: 
  Country: None (occurrence: None)
  Receive Date: 20100120
  Receipt Date: 20100108
  Transmission Date: 20100710
  Serious: Yes (Hospitalization, Other)
  Sender: FDA-Public Use
  Company Number: 230284JI0USA

PATIENT
  Age: 29 Year
  Sex: Female

DRUGS (5)
  1. REBIF [Suspect]
     Indication: MULTIPLE SCLEROSIS
     Dosage: 44 MCG, 3 IN 1 WEEKS, SUBCUTANEOUS
     Route: 058
     Dates: start: 20090514
  2. UNSPECIFIED BLOOD PRESSURE MEDICATION (OTHER ANTIHYPERTENSIVES) [Concomitant]
  3. UNSPECIFIED THYROID MEDICATION (THYROID THERAPY) [Concomitant]
  4. NEURONTIN [Concomitant]
  5. VICODIN [Concomitant]

REACTIONS (6)
  - AMNESIA [None]
  - ASPIRATION [None]
  - CONDITION AGGRAVATED [None]
  - MULTIPLE SCLEROSIS [None]
  - OVERDOSE [None]
  - ROAD TRAFFIC ACCIDENT [None]
